FAERS Safety Report 14300681 (Version 3)
Quarter: 2018Q3

REPORT INFORMATION
  Report Type: Spontaneous
  Country: DE (occurrence: DE)
  Receive Date: 20171219
  Receipt Date: 20180724
  Transmission Date: 20181010
  Serious: Yes (Hospitalization, Other)
  Sender: FDA-Public Use
  Company Number: PHHY2017DE188872

PATIENT
  Age: 38 Year
  Sex: Female

DRUGS (1)
  1. VALPROATE SODIUM. [Suspect]
     Active Substance: VALPROATE SODIUM
     Indication: BIPOLAR DISORDER
     Dosage: 1800 MG, QD
     Route: 065

REACTIONS (11)
  - Impulsive behaviour [Recovered/Resolved]
  - Sleep disorder [Recovered/Resolved]
  - Withdrawal syndrome [Recovered/Resolved]
  - Visual impairment [Recovered/Resolved]
  - Overdose [Recovered/Resolved]
  - Weight increased [Unknown]
  - Suicidal ideation [Recovered/Resolved]
  - Dizziness [Recovered/Resolved]
  - Drug level increased [Recovered/Resolved]
  - Headache [Recovered/Resolved]
  - Depression [Recovered/Resolved]
